FAERS Safety Report 8965932 (Version 4)
Quarter: 2013Q4

REPORT INFORMATION
  Report Type: Spontaneous
  Country: US (occurrence: US)
  Receive Date: 20121214
  Receipt Date: 20131007
  Transmission Date: 20140711
  Serious: Yes (Death, Hospitalization)
  Sender: FDA-Public Use
  Company Number: US-PFIZER INC-2012313281

PATIENT
  Age: 76 Year
  Sex: Female

DRUGS (1)
  1. RAPAMUNE [Suspect]
     Indication: LIVER TRANSPLANT
     Dosage: 2 MG, 2X/DAY
     Dates: start: 20120906

REACTIONS (4)
  - Death [Fatal]
  - Neoplasm [Unknown]
  - Epistaxis [Unknown]
  - Off label use [Unknown]
